FAERS Safety Report 17441903 (Version 1)
Quarter: 2020Q1

REPORT INFORMATION
  Report Type: Spontaneous
  Country: ES (occurrence: ES)
  Receive Date: 20200220
  Receipt Date: 20200220
  Transmission Date: 20200409
  Serious: Yes (Hospitalization)
  Sender: FDA-Public Use
  Company Number: NVSC2020ES042523

PATIENT
  Age: 11 Year
  Sex: Male
  Weight: 32.2 kg

DRUGS (4)
  1. METAMIZOLE [Suspect]
     Active Substance: METAMIZOLE
     Indication: PAIN
     Dosage: 483 MG, Q8H
     Route: 042
     Dates: start: 20191031, end: 20191104
  2. PARACETAMOL [Concomitant]
     Active Substance: ACETAMINOPHEN
     Indication: PAIN
     Dosage: 500 MG, Q8H
     Route: 042
     Dates: start: 20191030
  3. IBUPROFEN. [Suspect]
     Active Substance: IBUPROFEN
     Indication: PAIN
     Dosage: 250 MG, Q8H
     Route: 048
     Dates: start: 20191029, end: 20191105
  4. CEFAZOLINA SODICA [Suspect]
     Active Substance: CEFAZOLIN
     Indication: OSTEOMYELITIS
     Dosage: 1200 MG, Q6H
     Route: 042
     Dates: start: 20191030, end: 20191103

REACTIONS (4)
  - Rash maculo-papular [Recovered/Resolved]
  - Face oedema [Recovered/Resolved]
  - Abdominal pain [Recovered/Resolved]
  - Pruritus [Recovered/Resolved]

NARRATIVE: CASE EVENT DATE: 20191102
